FAERS Safety Report 6995995-6 (Version None)
Quarter: 2010Q3

REPORT INFORMATION
  Report Type: 
  Country: None (occurrence: None)
  Receive Date: 20100918
  Receipt Date: 20090106
  Transmission Date: 20110219
  Serious: Yes (Other)
  Sender: FDA-Public Use
  Company Number: US-WYE-H07035208

PATIENT
  Age: 47 Year
  Sex: Female
  Weight: 49.94 kg

DRUGS (3)
  1. EFFEXOR XR [Suspect]
     Indication: DEPRESSION
     Dosage: ^GRADUALLY INCREASED TO 150 MG^
     Route: 048
     Dates: start: 20080701, end: 20080901
  2. EFFEXOR XR [Suspect]
     Dosage: ^SLOWLY DECREASING^
     Route: 048
     Dates: start: 20080901, end: 20081101
  3. EFFEXOR XR [Suspect]
     Route: 048
     Dates: start: 20081101, end: 20081118

REACTIONS (10)
  - ANGER [None]
  - BLOOD CHOLESTEROL INCREASED [None]
  - BLOOD PRESSURE INCREASED [None]
  - DRUG WITHDRAWAL SYNDROME [None]
  - FEELING ABNORMAL [None]
  - HEADACHE [None]
  - LOSS OF CONSCIOUSNESS [None]
  - MUSCLE CONTRACTURE [None]
  - NIGHTMARE [None]
  - SINUS TACHYCARDIA [None]
